FAERS Safety Report 24327492 (Version 4)
Quarter: 2025Q3

REPORT INFORMATION
  Report Type: Report from Study
  Country: CL (occurrence: CL)
  Receive Date: 20240917
  Receipt Date: 20250809
  Transmission Date: 20251021
  Serious: Yes (Other)
  Sender: ALEXION PHARMACEUTICALS
  Company Number: 2024A209907

PATIENT
  Age: 82 Year
  Sex: Female

DRUGS (5)
  1. TAGRISSO [Suspect]
     Active Substance: OSIMERTINIB
     Indication: Lung neoplasm malignant
     Dosage: 80 MILLIGRAM, QD
     Dates: start: 20230511
  2. TAGRISSO [Suspect]
     Active Substance: OSIMERTINIB
     Dosage: 40 MILLIGRAM, QD
     Dates: start: 20240905
  3. TAGRISSO [Suspect]
     Active Substance: OSIMERTINIB
     Dosage: 80 MILLIGRAM, QD
     Dates: start: 20230511
  4. NEBIVOLOL [Concomitant]
     Active Substance: NEBIVOLOL
     Indication: Hypertension
     Dosage: .5 MILLIGRAM, QD
     Dates: start: 2020
  5. LOPERAMIDE [Concomitant]
     Active Substance: LOPERAMIDE
     Indication: Diarrhoea

REACTIONS (9)
  - Arrhythmia [Not Recovered/Not Resolved]
  - Emphysema [Not Recovered/Not Resolved]
  - Spinal deformity [Not Recovered/Not Resolved]
  - Lung disorder [Unknown]
  - Heart rate increased [Unknown]
  - Pain [Unknown]
  - Protein total increased [Unknown]
  - Onychoclasis [Unknown]
  - Visual impairment [Unknown]

NARRATIVE: CASE EVENT DATE: 20240401
